FAERS Safety Report 5214647-6 (Version None)
Quarter: 2006Q4

REPORT INFORMATION
  Report Type: 
  Country: None (occurrence: None)
  Receive Date: 20061107
  Receipt Date: 20060215
  Transmission Date: 20070319
  Serious: No
  Sender: FDA-Public Use
  Company Number: 003

PATIENT
  Age: 3 Year
  Sex: Female
  Weight: 8 kg

DRUGS (5)
  1. INCRELEX [Suspect]
     Indication: INSULIN-LIKE GROWTH FACTOR DECREASED
     Dosage: 150 MCG/BID, INJECTION
     Dates: start: 20060206, end: 20060209
  2. LEVOTHYROXINE SODIUM [Concomitant]
  3. PANCREASE MT [Concomitant]
  4. ADEK VITAMIN [Concomitant]
  5. IVIG INFUSION [Concomitant]

REACTIONS (5)
  - ERYTHEMA [None]
  - FLUID RETENTION [None]
  - OEDEMA PERIPHERAL [None]
  - RASH [None]
  - SWELLING FACE [None]
